FAERS Safety Report 6233464-1 (Version None)
Quarter: 2009Q2

REPORT INFORMATION
  Report Type: 
  Country: None (occurrence: None)
  Receive Date: 20090617
  Receipt Date: 20090610
  Transmission Date: 20091009
  Serious: Yes (Other)
  Sender: FDA-Public Use
  Company Number: DE-ASTRAZENECA-2009PK01215

PATIENT
  Age: 24650 Day
  Sex: Female
  Weight: 80 kg

DRUGS (1)
  1. FASLODEX [Suspect]
     Indication: BREAST CANCER METASTATIC
     Dosage: THIRD APPLICATION
     Route: 030

REACTIONS (2)
  - DYSGEUSIA [None]
  - DYSPNOEA [None]
